FAERS Safety Report 9331438 (Version 2)
Quarter: 2013Q3

REPORT INFORMATION
  Report Type: Report from Study
  Country: US (occurrence: US)
  Receive Date: 20130605
  Receipt Date: 20130808
  Transmission Date: 20140515
  Serious: Yes (Other)
  Sender: FDA-Public Use
  Company Number: US-ELI_LILLY_AND_COMPANY-US201211004148

PATIENT
  Age: 62 Year
  Sex: Female

DRUGS (2)
  1. TERIPARATIDE [Suspect]
     Indication: OSTEOPOROSIS
     Dosage: 20 UG, QD
     Dates: start: 20121106
  2. TERIPARATIDE [Suspect]
     Dosage: 20 UG, QD
     Dates: end: 20130501

REACTIONS (14)
  - Tachycardia [Unknown]
  - Memory impairment [Unknown]
  - Metamorphopsia [Unknown]
  - Palpitations [Not Recovered/Not Resolved]
  - Back pain [Unknown]
  - Musculoskeletal stiffness [Unknown]
  - Feeling abnormal [Unknown]
  - Pain in extremity [Unknown]
  - Toothache [Unknown]
  - Injection site haemorrhage [Unknown]
  - Headache [Not Recovered/Not Resolved]
  - Nausea [Not Recovered/Not Resolved]
  - Wrong technique in drug usage process [Unknown]
  - Blood magnesium decreased [Unknown]
